FAERS Safety Report 6907083-5 (Version None)
Quarter: 2010Q3

REPORT INFORMATION
  Report Type: 
  Country: None (occurrence: None)
  Receive Date: 20100804
  Receipt Date: 20080716
  Transmission Date: 20110219
  Serious: Yes (Other)
  Sender: FDA-Public Use
  Company Number: FR-PFIZER INC-2007075823

PATIENT
  Sex: Male
  Weight: 49.7 kg

DRUGS (7)
  1. MARAVIROC [Suspect]
     Indication: HIV INFECTION
     Route: 048
     Dates: start: 20051024, end: 20071015
  2. MARAVIROC [Suspect]
     Route: 048
     Dates: start: 20071126
  3. TIPRANAVIR [Concomitant]
     Route: 048
     Dates: start: 20051026
  4. ABACAVIR SULFATE/LAMIVUDINE [Concomitant]
     Route: 048
     Dates: start: 20051026
  5. NORVIR [Concomitant]
     Route: 048
     Dates: start: 20031030
  6. SUSTIVA [Concomitant]
     Route: 048
     Dates: start: 20051026
  7. VIDEX [Concomitant]
     Route: 048
     Dates: start: 20051026

REACTIONS (1)
  - HODGKIN'S DISEASE [None]
